FAERS Safety Report 4355745-9 (Version None)
Quarter: 2004Q2

REPORT INFORMATION
  Report Type: 
  Country: None (occurrence: None)
  Receive Date: 20040510
  Receipt Date: 20040510
  Transmission Date: 20050107
  Serious: Yes (Other)
  Sender: FDA-Public Use
  Company Number: None

PATIENT
  Age: 79 Year
  Sex: Male
  Weight: 90 kg

DRUGS (1)
  1. AVALOX 400MG IV [Suspect]
     Indication: URINARY TRACT INFECTION
     Dosage: 400MG IV
     Route: 042
     Dates: start: 20040310, end: 20040311

REACTIONS (2)
  - CONFUSIONAL STATE [None]
  - RESTLESSNESS [None]
